FAERS Safety Report 11404056 (Version 1)
Quarter: 2015Q3

REPORT INFORMATION
  Report Type: Spontaneous
  Country: AU (occurrence: AU)
  Receive Date: 20150821
  Receipt Date: 20150821
  Transmission Date: 20151125
  Serious: Yes (Hospitalization, Other)
  Sender: FDA-Public Use
  Company Number: AU-MYLANLABS-2015M1027783

PATIENT

DRUGS (3)
  1. DEXAMFETAMINE [Suspect]
     Active Substance: DEXTROAMPHETAMINE
     Indication: ATTENTION DEFICIT/HYPERACTIVITY DISORDER
     Dosage: 30 MG/DAY
     Route: 065
  2. ESTRADIOL. [Suspect]
     Active Substance: ESTRADIOL
     Indication: OVARIAN FAILURE
     Route: 062
  3. ESTRADIOL. [Suspect]
     Active Substance: ESTRADIOL
     Indication: OVARIAN FAILURE
     Route: 061

REACTIONS (5)
  - Metrorrhagia [Unknown]
  - Psychotic disorder [Recovered/Resolved]
  - Drug withdrawal syndrome [Recovered/Resolved]
  - Menorrhagia [Unknown]
  - Unmasking of previously unidentified disease [Recovered/Resolved]
